FAERS Safety Report 19483287 (Version 3)
Quarter: 2021Q3

REPORT INFORMATION
  Report Type: Report from Study
  Country: CO (occurrence: CO)
  Receive Date: 20210701
  Receipt Date: 20210920
  Transmission Date: 20211014
  Serious: Yes (Hospitalization)
  Sender: FDA-Public Use
  Company Number: NVSC2021CO145333

PATIENT
  Sex: Male
  Weight: 27.5 kg

DRUGS (5)
  1. OMNITROPE [Suspect]
     Active Substance: SOMATROPIN
     Indication: GROWTH HORMONE DEFICIENCY
     Dosage: 1.3 MG, QD (STOP DATE 6TH APR)
     Route: 058
     Dates: start: 20200325
  2. OMNITROPE [Suspect]
     Active Substance: SOMATROPIN
     Dosage: 1.3 MG, QD (11 APR TO 17 APR))
     Route: 058
  3. OMNITROPE [Suspect]
     Active Substance: SOMATROPIN
     Dosage: 1.2 UNK, QD
     Route: 058
     Dates: end: 202105
  4. OMNITROPE [Suspect]
     Active Substance: SOMATROPIN
     Dosage: 1.2 MG, QD
     Route: 058
     Dates: start: 20210913
  5. OMNITROPE [Suspect]
     Active Substance: SOMATROPIN
     Dosage: 1.2 MG, QD
     Route: 058

REACTIONS (4)
  - Dengue fever [Recovered/Resolved]
  - Headache [Recovered/Resolved]
  - Product supply issue [Unknown]
  - Expired product administered [Unknown]
